FAERS Safety Report 22350806 (Version 1)
Quarter: 2023Q2

REPORT INFORMATION
  Report Type: Spontaneous
  Country: FI (occurrence: FI)
  Receive Date: 20230522
  Receipt Date: 20230522
  Transmission Date: 20230722
  Serious: Yes (Other)
  Sender: FDA-Public Use
  Company Number: None

PATIENT
  Age: 27 Year
  Sex: Female

DRUGS (2)
  1. NEXPLANON [Suspect]
     Active Substance: ETONOGESTREL
     Indication: Contraception
     Dosage: 1 IMPLANT
     Route: 058
     Dates: start: 20210908, end: 20230428
  2. LEVOTHYROXINE [Concomitant]
     Active Substance: LEVOTHYROXINE
     Indication: Hypothyroidism
     Dosage: 100,?G,DAILY
     Route: 048
     Dates: start: 2008

REACTIONS (6)
  - Menstrual disorder [Recovering/Resolving]
  - Self-injurious ideation [Recovering/Resolving]
  - Abdominal distension [Recovering/Resolving]
  - Dysmenorrhoea [Recovering/Resolving]
  - Ovarian cyst [Recovering/Resolving]
  - Mood swings [Recovering/Resolving]

NARRATIVE: CASE EVENT DATE: 20211210
